FAERS Safety Report 5652138-9 (Version None)
Quarter: 2008Q1

REPORT INFORMATION
  Report Type: 
  Country: None (occurrence: None)
  Receive Date: 20080131
  Receipt Date: 20071030
  Transmission Date: 20080703
  Serious: No
  Sender: FDA-Public Use
  Company Number: US200710007666

PATIENT
  Age: 56 Year
  Sex: Female

DRUGS (6)
  1. BYETTA [Suspect]
     Indication: TYPE 2 DIABETES MELLITUS
     Dosage: 5 UG, 2/D, SUBCUTANEOUS
     Route: 058
     Dates: start: 20070930, end: 20071029
  2. DRUG USED IN DIABETES [Concomitant]
  3. CYMBALTA [Concomitant]
  4. CELEBREX [Concomitant]
  5. LOTENSIN [Concomitant]
  6. VYTORIN [Concomitant]

REACTIONS (8)
  - ACNE [None]
  - BODY TEMPERATURE INCREASED [None]
  - CONFUSIONAL STATE [None]
  - ERYTHEMA [None]
  - FEELING JITTERY [None]
  - IRRITABILITY [None]
  - SOMNOLENCE [None]
  - THINKING ABNORMAL [None]
